FAERS Safety Report 23376285 (Version 1)
Quarter: 2024Q1

REPORT INFORMATION
  Report Type: Report from Study
  Country: CA (occurrence: CA)
  Receive Date: 20240108
  Receipt Date: 20240108
  Transmission Date: 20240410
  Serious: Yes (Death, Other)
  Sender: FDA-Public Use
  Company Number: CA-JNJFOC-20240107934

PATIENT
  Age: 64 Year
  Sex: Male
  Weight: 113 kg

DRUGS (1)
  1. REMICADE [Suspect]
     Active Substance: INFLIXIMAB
     Indication: Crohn^s disease
     Route: 041
     Dates: start: 20150418

REACTIONS (3)
  - Post procedural complication [Fatal]
  - Pancreatic carcinoma metastatic [Unknown]
  - Off label use [Unknown]
